FAERS Safety Report 7042104-3 (Version None)
Quarter: 2010Q4

REPORT INFORMATION
  Report Type: 
  Country: None (occurrence: None)
  Receive Date: 20101013
  Receipt Date: 20100317
  Transmission Date: 20110411
  Serious: No
  Sender: FDA-Public Use
  Company Number: US-ASTRAZENECA-2010SE11745

PATIENT
  Sex: Female

DRUGS (2)
  1. SYMBICORT [Suspect]
     Dosage: 160/4.5 UG 1 PUFF AT NIGHT
     Route: 055
     Dates: start: 20090901, end: 20100301
  2. SYMBICORT [Suspect]
     Dosage: 160/4.5 UG 1 PUFF TWICE A DAY
     Route: 055
     Dates: start: 20100301

REACTIONS (2)
  - ARTHRITIS [None]
  - MULTIPLE ALLERGIES [None]
